FAERS Safety Report 11270630 (Version 1)
Quarter: 2015Q3

REPORT INFORMATION
  Report Type: Report from Study
  Country: ZA (occurrence: ZA)
  Receive Date: 20150714
  Receipt Date: 20150714
  Transmission Date: 20151125
  Serious: Yes (Other)
  Sender: FDA-Public Use
  Company Number: PHHY2015ZA082753

PATIENT
  Age: 18 Year
  Sex: Female
  Weight: 45.9 kg

DRUGS (5)
  1. FERROUS SULFATE [Concomitant]
     Active Substance: FERROUS SULFATE\FERROUS SULFATE, DRIED
     Indication: IRON DEFICIENCY
     Route: 065
  2. PREGAMAL [Concomitant]
     Indication: IRON DEFICIENCY
     Dosage: UNK
     Route: 065
     Dates: start: 20140206
  3. GLIVEC [Suspect]
     Active Substance: IMATINIB MESYLATE
     Indication: PRODUCT USED FOR UNKNOWN INDICATION
     Dosage: 600 MG, QD
     Route: 048
     Dates: start: 20041014, end: 20150108
  4. FOLATE [Concomitant]
     Active Substance: FOLATE SODIUM
     Indication: ANAEMIA
     Dosage: UNK
     Route: 065
     Dates: start: 20140508
  5. CYCLOCAPRON [Concomitant]
     Indication: MENORRHAGIA
     Dosage: UNK
     Route: 065
     Dates: start: 20140206

REACTIONS (2)
  - Abortion spontaneous [Unknown]
  - Maternal exposure during pregnancy [Unknown]

NARRATIVE: CASE EVENT DATE: 201503
